FAERS Safety Report 23461450 (Version 3)
Quarter: 2024Q2

REPORT INFORMATION
  Report Type: Spontaneous
  Country: DE (occurrence: DE)
  Receive Date: 20240131
  Receipt Date: 20240520
  Transmission Date: 20240716
  Serious: Yes (Other)
  Sender: FDA-Public Use
  Company Number: DE-SANOFI-01919277

PATIENT
  Age: 26 Year
  Sex: Female
  Weight: 50 kg

DRUGS (1)
  1. DUPIXENT [Suspect]
     Active Substance: DUPILUMAB
     Indication: Nasal polyps
     Dosage: 300 MG, QOW
     Dates: start: 20230320

REACTIONS (3)
  - Abdominal wall abscess [Unknown]
  - Streptococcal infection [Unknown]
  - Inflammation [Unknown]

NARRATIVE: CASE EVENT DATE: 20231001
